FAERS Safety Report 19997922 (Version 2)
Quarter: 2021Q4

REPORT INFORMATION
  Report Type: Spontaneous
  Country: US (occurrence: US)
  Receive Date: 20211026
  Receipt Date: 20211203
  Transmission Date: 20220303
  Serious: Yes (Other)
  Sender: FDA-Public Use
  Company Number: US-BAYER-2021A235001

PATIENT
  Sex: Female

DRUGS (2)
  1. STIVARGA [Suspect]
     Active Substance: REGORAFENIB
     Indication: Product used for unknown indication
     Dosage: UNK
     Dates: end: 20211004
  2. LONSURF [Suspect]
     Active Substance: TIPIRACIL HYDROCHLORIDE\TRIFLURIDINE
     Indication: Colon cancer
     Dosage: 60 MG, BID
     Route: 048
     Dates: start: 20210322, end: 20210418

REACTIONS (11)
  - Mass [Not Recovered/Not Resolved]
  - Blood sodium decreased [Unknown]
  - Full blood count abnormal [None]
  - Weight decreased [Unknown]
  - Hepatic enzyme decreased [Unknown]
  - Arthralgia [Not Recovered/Not Resolved]
  - Dyspnoea [Unknown]
  - Pain [Unknown]
  - Asthenia [None]
  - Food refusal [Unknown]
  - Gait disturbance [Unknown]
